FAERS Safety Report 9013793 (Version 1)
Quarter: 2013Q1

REPORT INFORMATION
  Report Type: Spontaneous
  Country: US (occurrence: None)
  Receive Date: 20130108
  Receipt Date: 20130108
  Transmission Date: 20140127
  Serious: No
  Sender: FDA-Public Use
  Company Number: None

PATIENT
  Age: 41 Year
  Sex: Female
  Weight: 81.65 kg

DRUGS (2)
  1. SUBOXONE, 8 MG, BECKIT RICKETT [Suspect]
     Route: 060
  2. SUBOXONE, 8 MG, BECKIT RICKETT [Suspect]
     Route: 060

REACTIONS (4)
  - Adverse reaction [None]
  - Drug effect decreased [None]
  - Abdominal discomfort [None]
  - Malaise [None]
